FAERS Safety Report 7372720-0 (Version None)
Quarter: 2011Q1

REPORT INFORMATION
  Report Type: 
  Country: None (occurrence: None)
  Receive Date: 20110324
  Receipt Date: 20110315
  Transmission Date: 20110831
  Serious: Yes (Life-Threatening, Hospitalization, Disabling)
  Sender: FDA-Public Use
  Company Number: GB-MPIJNJ-2011-00697

PATIENT

DRUGS (2)
  1. VELCADE [Suspect]
     Dosage: UNK
     Route: 042
     Dates: start: 20101201, end: 20110201
  2. VELCADE [Suspect]
     Indication: MULTIPLE MYELOMA
     Dosage: UNK
     Dates: start: 20101026, end: 20101224

REACTIONS (2)
  - HYPERCALCAEMIA [None]
  - DRUG INEFFECTIVE [None]
